FAERS Safety Report 17463319 (Version 1)
Quarter: 2020Q1

REPORT INFORMATION
  Report Type: Spontaneous
  Country: US (occurrence: US)
  Receive Date: 20191107
  Receipt Date: 20191107
  Transmission Date: 20200409
  Serious: Yes (Hospitalization)
  Sender: FDA-Public Use
  Company Number: None

PATIENT
  Age: 43 Year
  Sex: Female

DRUGS (4)
  1. THC VAPING CARTRIDGES ARE UNFLAVORED: PINGS PENS, 1% TKO^ [Suspect]
     Active Substance: .DELTA.8-TETRAHYDROCANNABINOL\DEVICE\HERBALS
  2. THC OIL, CANNABIDIOL FLAVORED WITH FRUIT PUNCH [Suspect]
     Active Substance: CANNABIDIOL\.DELTA.8-TETRAHYDROCANNABINOL\DEVICE\HERBALS
  3. DANK VAPES THC CARTRIDGES [Suspect]
     Active Substance: .DELTA.8-TETRAHYDROCANNABINOL\DEVICE\HERBALS
  4. PREMIUM CBD DROPS [Suspect]
     Active Substance: CANNABIDIOL

REACTIONS (2)
  - Anxiety [None]
  - Attention deficit/hyperactivity disorder [None]
